FAERS Safety Report 19707092 (Version 1)
Quarter: 2021Q3

REPORT INFORMATION
  Report Type: Spontaneous
  Country: CA (occurrence: CA)
  Receive Date: 20210817
  Receipt Date: 20210817
  Transmission Date: 20211014
  Serious: Yes (Other)
  Sender: FDA-Public Use
  Company Number: CA-SAMSUNG BIOEPIS-SB-2021-19065

PATIENT
  Age: 51 Year
  Sex: Female
  Weight: 70 kg

DRUGS (2)
  1. PREDNISONE. [Concomitant]
     Active Substance: PREDNISONE
     Indication: PRODUCT USED FOR UNKNOWN INDICATION
     Route: 065
  2. INFLIXIMAB [Suspect]
     Active Substance: INFLIXIMAB
     Indication: COLITIS ULCERATIVE
     Route: 042

REACTIONS (9)
  - Off label use [Recovered/Resolved]
  - Intentional product use issue [Recovered/Resolved]
  - Condition aggravated [Recovered/Resolved]
  - Product use issue [Recovered/Resolved]
  - Cardiovascular disorder [Recovered/Resolved]
  - Inappropriate schedule of product administration [Recovered/Resolved]
  - Periorbital cellulitis [Recovered/Resolved]
  - Weight increased [Recovered/Resolved]
  - Alopecia [Recovered/Resolved]
